FAERS Safety Report 25270365 (Version 1)
Quarter: 2025Q2

REPORT INFORMATION
  Report Type: Spontaneous
  Country: CN (occurrence: CN)
  Receive Date: 20250505
  Receipt Date: 20250505
  Transmission Date: 20250717
  Serious: Yes (Hospitalization, Other)
  Sender: PFIZER
  Company Number: CN-PFIZER INC-PV202500051381

PATIENT
  Age: 12 Year
  Sex: Male
  Weight: 34 kg

DRUGS (5)
  1. CYTARABINE [Suspect]
     Active Substance: CYTARABINE
     Indication: Anaplastic large cell lymphoma T- and null-cell types
     Dosage: 0.17 G, 2X/DAY
     Route: 041
     Dates: start: 20250410, end: 20250411
  2. METHOTREXATE SODIUM [Suspect]
     Active Substance: METHOTREXATE SODIUM
     Indication: Anaplastic large cell lymphoma T- and null-cell types
     Dosage: 5650 MG, 1X/DAY
     Route: 041
     Dates: start: 20250407, end: 20250407
  3. ETOPOSIDE [Suspect]
     Active Substance: ETOPOSIDE
     Indication: Anaplastic large cell lymphoma T- and null-cell types
     Dosage: 0.113 G, 1X/DAY
     Route: 041
     Dates: start: 20250410, end: 20250411
  4. IFOSFAMIDE [Suspect]
     Active Substance: IFOSFAMIDE
     Indication: Anaplastic large cell lymphoma T- and null-cell types
     Dosage: 0.904 G, 1X/DAY
     Route: 041
     Dates: start: 20250407, end: 20250411
  5. VINCRISTINE SULFATE [Suspect]
     Active Substance: VINCRISTINE SULFATE
     Indication: Anaplastic large cell lymphoma T- and null-cell types
     Dosage: 1.695 MG, 1X/DAY (LYOPHILIZED POWDER)
     Route: 041
     Dates: start: 20250407, end: 20250407

REACTIONS (2)
  - Myelosuppression [Recovering/Resolving]
  - Febrile infection [Recovering/Resolving]

NARRATIVE: CASE EVENT DATE: 20250421
